FAERS Safety Report 15415786 (Version 2)
Quarter: 2018Q3

REPORT INFORMATION
  Report Type: Spontaneous
  Country: US (occurrence: US)
  Receive Date: 20180922
  Receipt Date: 20180927
  Transmission Date: 20181010
  Serious: Yes (Other)
  Sender: FDA-Public Use
  Company Number: US-TORRENT-00006889

PATIENT
  Sex: Male
  Weight: 98 kg

DRUGS (3)
  1. ZOLPIDEM TARTRATE. [Suspect]
     Active Substance: ZOLPIDEM TARTRATE
     Indication: SLEEP DISORDER
     Dosage: NDC: 13668?0008?05, HALF AT BED TIME
     Dates: start: 20180831, end: 20180908
  2. GABAPENTIN. [Concomitant]
     Active Substance: GABAPENTIN
     Indication: BURSITIS
     Dosage: ONCE A DAY
  3. ESCITALOPRAM [Concomitant]
     Active Substance: ESCITALOPRAM OXALATE
     Indication: ANXIETY
     Dosage: FIST THING IN THE MORNING

REACTIONS (1)
  - Drug ineffective [Unknown]
